FAERS Safety Report 7773970-1 (Version None)
Quarter: 2011Q3

REPORT INFORMATION
  Report Type: 
  Country: None (occurrence: None)
  Receive Date: 20110923
  Receipt Date: 20110916
  Transmission Date: 20111222
  Serious: Yes (Hospitalization)
  Sender: FDA-Public Use
  Company Number: FR-PFIZER INC-2011219651

PATIENT
  Age: 53 Year
  Sex: Female

DRUGS (1)
  1. FLUCONAZOLE [Suspect]
     Dosage: 400 MG, 1X/DAY
     Route: 048
     Dates: start: 20110705, end: 20110725

REACTIONS (2)
  - RASH VESICULAR [None]
  - PYREXIA [None]
